FAERS Safety Report 14029954 (Version 3)
Quarter: 2018Q3

REPORT INFORMATION
  Report Type: Report from Study
  Country: US (occurrence: US)
  Receive Date: 20170930
  Receipt Date: 20180917
  Transmission Date: 20181010
  Serious: Yes (Other)
  Sender: FDA-Public Use
  Company Number: US-SA-2017SA115604

PATIENT
  Age: 63 Year
  Sex: Female

DRUGS (4)
  1. TERIFLUNOMIDE [Suspect]
     Active Substance: TERIFLUNOMIDE
     Indication: MULTIPLE SCLEROSIS
     Dosage: 14 MG, QD
     Route: 048
     Dates: start: 20130711, end: 201706
  2. TERIFLUNOMIDE [Suspect]
     Active Substance: TERIFLUNOMIDE
     Dosage: 14 MG,QD
     Route: 048
     Dates: start: 201808
  3. ZANAFLEX [Suspect]
     Active Substance: TIZANIDINE HYDROCHLORIDE
  4. TECFIDERA [Suspect]
     Active Substance: DIMETHYL FUMARATE

REACTIONS (24)
  - Stress [Recovered/Resolved]
  - Muscle spasms [Recovered/Resolved]
  - Condition aggravated [Recovered/Resolved]
  - Anxiety [Unknown]
  - Feeling abnormal [Unknown]
  - Alopecia [Unknown]
  - Pruritus [Recovered/Resolved]
  - Arthritis [Not Recovered/Not Resolved]
  - Rash [Recovered/Resolved]
  - Muscle spasms [Recovered/Resolved]
  - Decreased appetite [Recovered/Resolved]
  - Temperature intolerance [Unknown]
  - Multiple sclerosis relapse [Unknown]
  - Weight decreased [Unknown]
  - Crying [Recovered/Resolved]
  - Condition aggravated [Unknown]
  - Nasal cyst [Not Recovered/Not Resolved]
  - Memory impairment [Unknown]
  - Rash [Unknown]
  - Balance disorder [Unknown]
  - Vascular graft [Unknown]
  - Movement disorder [Recovered/Resolved]
  - Formication [Unknown]
  - Amnesia [Not Recovered/Not Resolved]

NARRATIVE: CASE EVENT DATE: 2013
